FAERS Safety Report 6107455-5 (Version None)
Quarter: 2009Q1

REPORT INFORMATION
  Report Type: 
  Country: None (occurrence: None)
  Receive Date: 20090309
  Receipt Date: 20090224
  Transmission Date: 20090719
  Serious: Yes (Life-Threatening, Other)
  Sender: FDA-Public Use
  Company Number: CN-PFIZER INC-2009175941

PATIENT

DRUGS (4)
  1. ZITHROMAX [Suspect]
     Indication: PYREXIA
     Route: 042
     Dates: start: 20090217, end: 20090217
  2. CEPHALOSPORINS AND RELATED SUBSTANCES [Concomitant]
     Dosage: UNK
     Route: 042
     Dates: start: 20090203, end: 20090203
  3. TYLENOL [Concomitant]
     Dosage: UNK
     Route: 048
     Dates: start: 20090201, end: 20090201
  4. PEFLOXACIN [Concomitant]
     Dosage: UNK
     Route: 042
     Dates: start: 20090215, end: 20090216

REACTIONS (5)
  - BLOOD PRESSURE DECREASED [None]
  - CHILLS [None]
  - DYSPNOEA [None]
  - HYPOAESTHESIA [None]
  - VOMITING [None]
